FAERS Safety Report 8499338-0 (Version None)
Quarter: 2012Q2

REPORT INFORMATION
  Report Type: 
  Country: None (occurrence: None)
  Receive Date: 20120405
  Receipt Date: 20110106
  Transmission Date: 20120825
  Serious: Yes (Hospitalization)
  Sender: FDA-Public Use
  Company Number: PHHY2011US01693

PATIENT
  Age: 65 Year
  Sex: Female
  Weight: 109 kg

DRUGS (1)
  1. RECLAST [Suspect]
     Indication: OSTEOPOROSIS
     Dosage: 5 MG,YEARLY,INFUSION
     Dates: start: 20101214

REACTIONS (3)
  - NAUSEA [None]
  - ABDOMINAL PAIN [None]
  - VOMITING [None]
